FAERS Safety Report 19735231 (Version 1)
Quarter: 2021Q3

REPORT INFORMATION
  Report Type: Spontaneous
  Country: SA (occurrence: SA)
  Receive Date: 20210823
  Receipt Date: 20210823
  Transmission Date: 20211014
  Serious: Yes (Hospitalization, Other)
  Sender: FDA-Public Use
  Company Number: SA-AXELLIA-003867

PATIENT
  Age: 38 Year
  Sex: Female

DRUGS (1)
  1. VORICONAZOLE. [Suspect]
     Active Substance: VORICONAZOLE
     Indication: FUSARIUM INFECTION
     Route: 042

REACTIONS (1)
  - Drug-induced liver injury [Recovered/Resolved]
